FAERS Safety Report 8335535-2 (Version None)
Quarter: 2012Q2

REPORT INFORMATION
  Report Type: 
  Country: None (occurrence: None)
  Receive Date: 20120503
  Receipt Date: 20120424
  Transmission Date: 20120825
  Serious: Yes (Congenital Anomaly, Other)
  Sender: FDA-Public Use
  Company Number: US-BAXTER-2012BAX003868

PATIENT

DRUGS (4)
  1. DOXORUBICIN HCL [Suspect]
     Route: 064
  2. CYCLOPHOSPHAMIDE [Suspect]
     Route: 064
  3. VINCRISTINE SULFATE [Suspect]
     Route: 064
  4. PREDNISONE TAB [Suspect]
     Route: 064

REACTIONS (2)
  - FOETAL EXPOSURE DURING PREGNANCY [None]
  - MICROCEPHALY [None]
